FAERS Safety Report 6760231-2 (Version None)
Quarter: 2010Q2

REPORT INFORMATION
  Report Type: 
  Country: None (occurrence: None)
  Receive Date: 20100608
  Receipt Date: 20001003
  Transmission Date: 20101027
  Serious: No
  Sender: FDA-Public Use
  Company Number: 2000SUS0762

PATIENT
  Age: 20 Year
  Sex: Female

DRUGS (3)
  1. SUSTIVA [Suspect]
     Indication: HIV INFECTION
     Dosage: 600 MG AES#DOSE_FREQUENCY: DLY
     Route: 048
     Dates: start: 19990908
  2. NEVIRAPINE [Concomitant]
     Dosage: 200-400 MG DLY
     Route: 048
     Dates: start: 19990908
  3. ZIDOVUDINE [Concomitant]
     Dosage: 600 MG AES#DOSE_FREQUENCY: DLY
     Route: 048
     Dates: start: 19990908

REACTIONS (2)
  - NORMAL NEWBORN [None]
  - PREGNANCY [None]
